FAERS Safety Report 6512482-X (Version None)
Quarter: 2009Q4

REPORT INFORMATION
  Report Type: 
  Country: None (occurrence: None)
  Receive Date: 20091222
  Receipt Date: 20091207
  Transmission Date: 20100525
  Serious: Yes (Other)
  Sender: FDA-Public Use
  Company Number: DE-GENENTECH-296041

PATIENT
  Sex: Male

DRUGS (1)
  1. XOLAIR [Suspect]
     Indication: ASTHMA
     Dosage: 750 MG, 1/MONTH
     Route: 058
     Dates: start: 20070206, end: 20090804

REACTIONS (7)
  - DRY SKIN [None]
  - FATIGUE [None]
  - HEADACHE [None]
  - HYPERTENSION [None]
  - MYALGIA [None]
  - TYPE 2 DIABETES MELLITUS [None]
  - WEIGHT INCREASED [None]
